FAERS Safety Report 23810274 (Version 1)
Quarter: 2024Q2

REPORT INFORMATION
  Report Type: Spontaneous
  Country: CN (occurrence: CN)
  Receive Date: 20240502
  Receipt Date: 20240502
  Transmission Date: 20240716
  Serious: Yes (Life-Threatening, Hospitalization, Other)
  Sender: FDA-Public Use
  Company Number: CN-ELI_LILLY_AND_COMPANY-CN202404017827

PATIENT
  Age: 63 Year
  Sex: Female

DRUGS (2)
  1. PEMETREXED [Suspect]
     Active Substance: PEMETREXED
     Indication: Myelosuppression
     Dosage: 0.8 G, OTHER (ONCE IN 21 DAYS)
     Route: 041
     Dates: start: 20230427, end: 20231215
  2. CARBOPLATIN [Suspect]
     Active Substance: CARBOPLATIN
     Indication: Myelosuppression
     Dosage: 0.4 G, OTHER (ONCE IN 21 DAYS)
     Route: 041
     Dates: start: 20230427, end: 20231215

REACTIONS (3)
  - Platelet count decreased [Recovering/Resolving]
  - Myelosuppression [Recovering/Resolving]
  - Dizziness [Recovering/Resolving]

NARRATIVE: CASE EVENT DATE: 20231201
